FAERS Safety Report 10776299 (Version 3)
Quarter: 2015Q1

REPORT INFORMATION
  Report Type: Report from Study
  Country: FR (occurrence: FR)
  Receive Date: 20150209
  Receipt Date: 20150225
  Transmission Date: 20150721
  Serious: Yes (Hospitalization, Other)
  Sender: FDA-Public Use
  Company Number: FR-SA-2015SA003814

PATIENT
  Age: 66 Year
  Sex: Male

DRUGS (3)
  1. DOCETAXEL. [Suspect]
     Active Substance: DOCETAXEL
     Route: 065
  2. METFORMIN [Concomitant]
     Active Substance: METFORMIN HYDROCHLORIDE
     Indication: DIABETES MELLITUS
  3. ELIGARD [Suspect]
     Active Substance: LEUPROLIDE ACETATE
     Route: 065
     Dates: start: 201501

REACTIONS (19)
  - Onychomadesis [Not Recovered/Not Resolved]
  - Diabetes mellitus inadequate control [Unknown]
  - Dehydration [Unknown]
  - Gastrooesophageal reflux disease [Not Recovered/Not Resolved]
  - Pyrexia [Unknown]
  - Blindness [Unknown]
  - Constipation [Unknown]
  - Decreased appetite [Recovering/Resolving]
  - Bone pain [Unknown]
  - Lacrimation increased [Recovered/Resolved]
  - Diarrhoea [Not Recovered/Not Resolved]
  - Epistaxis [Unknown]
  - Back pain [Unknown]
  - Abdominal rigidity [Unknown]
  - Hyponatraemia [Unknown]
  - Prostatic pain [Recovered/Resolved]
  - Fatigue [Unknown]
  - Toothache [Recovered/Resolved]
  - Alopecia [Not Recovered/Not Resolved]

NARRATIVE: CASE EVENT DATE: 20141208
